FAERS Safety Report 9695577 (Version 1)
Quarter: 2013Q4

REPORT INFORMATION
  Report Type: Spontaneous
  Country: BR (occurrence: BR)
  Receive Date: 20131119
  Receipt Date: 20131119
  Transmission Date: 20140711
  Serious: Yes (Hospitalization)
  Sender: FDA-Public Use
  Company Number: BR-ASTRAZENECA-2013SE83718

PATIENT
  Age: 58 Year
  Sex: Male
  Weight: 139 kg

DRUGS (4)
  1. ATACAND [Suspect]
     Indication: BLOOD PRESSURE MANAGEMENT
     Route: 048
  2. ATACAND HCT [Suspect]
     Indication: BLOOD PRESSURE MANAGEMENT
     Dosage: 16/ 12.5 MG, UNKNOWN FREQUENCY
     Route: 048
  3. BRILINTA [Suspect]
     Indication: CORONARY ARTERY OCCLUSION
     Route: 048
     Dates: start: 201311
  4. SIMVASTATIN [Concomitant]
     Indication: BLOOD TRIGLYCERIDES INCREASED

REACTIONS (3)
  - Coronary artery occlusion [Recovered/Resolved]
  - Blood pressure fluctuation [Recovered/Resolved]
  - Off label use [Not Recovered/Not Resolved]
